FAERS Safety Report 25153841 (Version 1)
Quarter: 2025Q2

REPORT INFORMATION
  Report Type: Spontaneous
  Country: NL (occurrence: NL)
  Receive Date: 20250403
  Receipt Date: 20250403
  Transmission Date: 20250716
  Serious: Yes (Other)
  Sender: OCTAPHARMA
  Company Number: NL-OCTA-2025000273

PATIENT
  Age: 37 Year
  Sex: Female

DRUGS (1)
  1. OCTAPLAS LG [Suspect]
     Active Substance: PLASMA PROTEIN FRACTION (HUMAN)
     Indication: Coagulation factor deficiency
     Route: 042
     Dates: start: 20250226, end: 20250226

REACTIONS (8)
  - Malaise [Recovered/Resolved]
  - Fatigue [Recovered/Resolved]
  - Feeling hot [Recovered/Resolved]
  - Cough [Recovered/Resolved]
  - Blood pressure increased [Recovered/Resolved]
  - Headache [Recovered/Resolved]
  - Pruritus [Recovered/Resolved]
  - Hypersensitivity [Recovered/Resolved]

NARRATIVE: CASE EVENT DATE: 20250226
